FAERS Safety Report 14311335 (Version 1)
Quarter: 2017Q4

REPORT INFORMATION
  Report Type: Spontaneous
  Country: US (occurrence: US)
  Receive Date: 20171221
  Receipt Date: 20171221
  Transmission Date: 20180321
  Serious: No
  Sender: FDA-Public Use
  Company Number: US-NOVEN PHARMACEUTICALS, INC.-US2017000828

PATIENT

DRUGS (4)
  1. MINIVELLE [Suspect]
     Active Substance: ESTRADIOL
     Indication: HYSTERECTOMY
     Dosage: 0.1 MG, QD
     Route: 062
  2. WELLBUTRIN [Concomitant]
     Active Substance: BUPROPION HYDROCHLORIDE
     Indication: STRESS
     Dosage: 150 MG, UNK
  3. WELLBUTRIN [Concomitant]
     Active Substance: BUPROPION HYDROCHLORIDE
     Indication: PREMENSTRUAL SYNDROME
  4. LEXAPRO [Concomitant]
     Active Substance: ESCITALOPRAM OXALATE
     Indication: ANXIETY
     Dosage: 20 MG, BID

REACTIONS (8)
  - Product quality issue [Unknown]
  - Dizziness [Unknown]
  - Erythema [Unknown]
  - Headache [Unknown]
  - Drug ineffective [Unknown]
  - Product adhesion issue [Unknown]
  - Drug prescribing error [Unknown]
  - Night sweats [Unknown]

NARRATIVE: CASE EVENT DATE: 2017
